FAERS Safety Report 12653461 (Version 1)
Quarter: 2016Q3

REPORT INFORMATION
  Report Type: Spontaneous
  Country: US (occurrence: US)
  Receive Date: 20160815
  Receipt Date: 20160815
  Transmission Date: 20161109
  Serious: No
  Sender: FDA-Public Use
  Company Number: US-DEPOMED, INC.-US-2016DEP009293

PATIENT

DRUGS (1)
  1. CAMBIA [Suspect]
     Active Substance: DICLOFENAC POTASSIUM
     Indication: MIGRAINE
     Dosage: 50 MG, 1 PACKET IN 2-3 TBSP WATER WITH THE OPTION TO REPEAT  1 TIME IN 2 HOURS AS NEEDED
     Route: 048
     Dates: start: 20160201

REACTIONS (1)
  - Drug ineffective [Unknown]
